FAERS Safety Report 6217230-9 (Version None)
Quarter: 2009Q2

REPORT INFORMATION
  Report Type: 
  Country: None (occurrence: None)
  Receive Date: 20090608
  Receipt Date: 20090527
  Transmission Date: 20091009
  Serious: Yes (Disabling, Other)
  Sender: FDA-Public Use
  Company Number: GB-PFIZER INC-2009219191

PATIENT
  Age: 12 Year

DRUGS (4)
  1. GENOTROPIN [Suspect]
     Indication: HYPOPITUITARISM
     Dosage: UNK
     Dates: start: 20080901
  2. GENOTROPIN [Suspect]
     Dosage: 2.5 MG, UNK
  3. GENOTROPIN [Suspect]
     Dosage: 0.5 MG, UNK
  4. GENOTROPIN [Suspect]
     Dosage: 1.5 MG, UNK

REACTIONS (2)
  - DIZZINESS [None]
  - TRANSIENT ISCHAEMIC ATTACK [None]
